FAERS Safety Report 8234244-8 (Version None)
Quarter: 2012Q1

REPORT INFORMATION
  Report Type: 
  Country: None (occurrence: None)
  Receive Date: 20120321
  Receipt Date: 20120312
  Transmission Date: 20120608
  Serious: Yes (Other)
  Sender: FDA-Public Use
  Company Number: ACO_29705_2012

PATIENT
  Age: 64 Year
  Sex: Female
  Weight: 79.4 kg

DRUGS (5)
  1. BACLOFEN [Concomitant]
  2. BETASERON [Concomitant]
  3. TOVIAZ [Concomitant]
  4. AMPYRA [Suspect]
     Indication: GAIT DISTURBANCE
     Dosage: 10 MG, BID, ORAL
     Route: 048
     Dates: start: 20101201, end: 20111201
  5. MULTIVITAMIN C/00831701/ (VITAMINS NOS) [Concomitant]

REACTIONS (1)
  - OVARIAN CANCER [None]
